FAERS Safety Report 19134917 (Version 1)
Quarter: 2021Q2

REPORT INFORMATION
  Report Type: Spontaneous
  Country: NL (occurrence: IE)
  Receive Date: 20210414
  Receipt Date: 20210414
  Transmission Date: 20210717
  Serious: Yes (Other)
  Sender: FDA-Public Use
  Company Number: IE-FRESENIUS KABI-FK202103590

PATIENT
  Age: 61 Year
  Sex: Female

DRUGS (8)
  1. HYOSCINE BUTYLBROMIDE [Concomitant]
     Active Substance: BUTYLSCOPOLAMINE BROMIDE
     Indication: PRODUCT USED FOR UNKNOWN INDICATION
     Dosage: 40 MG PLUS PRNS
     Route: 065
     Dates: start: 20200616
  2. ANIDULAFUNGIN [Concomitant]
     Active Substance: ANIDULAFUNGIN
     Indication: PERICARDIAL EFFUSION
     Route: 065
     Dates: start: 20200709, end: 20200820
  3. MEROPENEM. [Concomitant]
     Active Substance: MEROPENEM
     Indication: PERICARDIAL EFFUSION
     Route: 065
     Dates: start: 20200604, end: 20200820
  4. ENOXAPARIN [Concomitant]
     Active Substance: ENOXAPARIN
     Indication: PULMONARY EMBOLISM
     Dosage: 85 MG OD
     Route: 065
     Dates: start: 20200328
  5. LEVOMEPROMAZINE [Concomitant]
     Active Substance: LEVOMEPROMAZINE
     Indication: NAUSEA
     Dosage: 12.5 MG VIA CSCI (CONTINUOUS SUBCUTANEOUS INFUSION)
     Route: 058
     Dates: start: 20200616
  6. ENOXAPARIN [Concomitant]
     Active Substance: ENOXAPARIN
     Indication: DEEP VEIN THROMBOSIS
  7. LINEZOLID (MANUFACTURER UNKNOWN) [Suspect]
     Active Substance: LINEZOLID
     Indication: PERICARDIAL EFFUSION
     Route: 042
     Dates: start: 20200625, end: 20200820
  8. PANTOPRAZOLE SODIUM SESQUIHYDRATE [Concomitant]
     Active Substance: PANTOPRAZOLE SODIUM
     Indication: GASTRITIS
     Route: 065
     Dates: start: 20200328

REACTIONS (2)
  - Lactic acidosis [Recovered/Resolved]
  - Intentional product use issue [Unknown]

NARRATIVE: CASE EVENT DATE: 20200820
